FAERS Safety Report 4370298-7 (Version None)
Quarter: 2004Q2

REPORT INFORMATION
  Report Type: 
  Country: None (occurrence: None)
  Receive Date: 20040603
  Receipt Date: 20040304
  Transmission Date: 20050107
  Serious: Yes (Hospitalization)
  Sender: FDA-Public Use
  Company Number: US-BRISTOL-MYERS SQUIBB COMPANY-12524666

PATIENT
  Age: 13 Year
  Sex: Male

DRUGS (3)
  1. ABILIFY [Suspect]
     Indication: AGGRESSION
     Dosage: INC TO 20 MG/DAY IN AUG-03; DEC TO 2.5 MG/DAY IN NOV-03; DISCONTINUED ON 02-MAR-04
     Route: 048
     Dates: start: 20030201, end: 20040302
  2. ABILIFY [Suspect]
     Indication: PSYCHOTIC DISORDER
     Dosage: INC TO 20 MG/DAY IN AUG-03; DEC TO 2.5 MG/DAY IN NOV-03; DISCONTINUED ON 02-MAR-04
     Route: 048
     Dates: start: 20030201, end: 20040302
  3. TRILEPTAL [Concomitant]
     Dosage: 450 MG/MORNING; 525 MG/NIGHT

REACTIONS (2)
  - PSYCHOTIC DISORDER [None]
  - WEIGHT INCREASED [None]
